FAERS Safety Report 14005496 (Version 1)
Quarter: 2017Q3

REPORT INFORMATION
  Report Type: Other
  Country: US (occurrence: US)
  Receive Date: 20170923
  Receipt Date: 20170923
  Transmission Date: 20171128
  Serious: No
  Sender: FDA-Public Use
  Company Number: US-APOTEX-2017AP014941

PATIENT
  Sex: Male

DRUGS (3)
  1. CLARISPRAY NASAL ALLERGY [Suspect]
     Active Substance: FLUTICASONE PROPIONATE
     Indication: VIRAL UPPER RESPIRATORY TRACT INFECTION
  2. CLARISPRAY NASAL ALLERGY [Suspect]
     Active Substance: FLUTICASONE PROPIONATE
     Indication: NASAL CONGESTION
  3. CLARISPRAY NASAL ALLERGY [Suspect]
     Active Substance: FLUTICASONE PROPIONATE
     Indication: SEASONAL ALLERGY
     Route: 045

REACTIONS (3)
  - Nasal pruritus [Unknown]
  - Drug effect incomplete [Unknown]
  - Nasal discomfort [Unknown]
